FAERS Safety Report 17823548 (Version 1)
Quarter: 2020Q2

REPORT INFORMATION
  Report Type: Spontaneous
  Country: US (occurrence: US)
  Receive Date: 20200526
  Receipt Date: 20200526
  Transmission Date: 20200714
  Serious: No
  Sender: FDA-Public Use
  Company Number: US-PFIZER INC-2020201959

PATIENT
  Age: 48 Year
  Sex: Female

DRUGS (2)
  1. SULFASALAZINE. [Suspect]
     Active Substance: SULFASALAZINE
  2. XELJANZ [Concomitant]
     Active Substance: TOFACITINIB CITRATE

REACTIONS (6)
  - Pyrexia [Unknown]
  - Malaise [Unknown]
  - Swelling face [Unknown]
  - Pruritus [Unknown]
  - Urticaria [Unknown]
  - Swelling of eyelid [Unknown]
